FAERS Safety Report 11163400 (Version 2)
Quarter: 2016Q3

REPORT INFORMATION
  Report Type: Spontaneous
  Country: US (occurrence: US)
  Receive Date: 20150604
  Receipt Date: 20160926
  Transmission Date: 20161109
  Serious: Yes (Hospitalization)
  Sender: FDA-Public Use
  Company Number: US-SA-2014SA123378

PATIENT
  Age: 64 Year
  Sex: Male
  Weight: 67 kg

DRUGS (20)
  1. LANTUS [Suspect]
     Active Substance: INSULIN GLARGINE
     Indication: TYPE 2 DIABETES MELLITUS
     Dosage: SLIDING SCALING 5-30 UNITS QHS
     Route: 058
     Dates: start: 1998
  2. BLINDED THERAPY [Suspect]
     Active Substance: INVESTIGATIONAL PRODUCT
     Indication: OSTEOARTHRITIS
     Route: 048
     Dates: start: 20130212, end: 20160221
  3. GENERAL NUTRIENTS [Concomitant]
     Dates: start: 2000
  4. BLINDED THERAPY [Suspect]
     Active Substance: INVESTIGATIONAL PRODUCT
     Indication: RHEUMATOID ARTHRITIS
     Route: 048
     Dates: start: 20130212, end: 20160221
  5. IRON [Concomitant]
     Active Substance: IRON
     Dates: start: 2008
  6. TYLENOL PM [Concomitant]
     Active Substance: ACETAMINOPHEN\DIPHENHYDRAMINE
     Dates: start: 2012
  7. VITAMIN D3 [Concomitant]
     Active Substance: CHOLECALCIFEROL
     Dates: start: 2008
  8. JANUVIA [Concomitant]
     Active Substance: SITAGLIPTIN PHOSPHATE
     Dates: start: 2012
  9. PANTHENOL/RETINOL/THIAMINE HYDROCHLORIDE/ASCORBIC ACID/ERGOCALCIFEROL/FOLIC ACID/RIBOFLAVIN/NICOTINA [Concomitant]
  10. NOVOLOG [Suspect]
     Active Substance: INSULIN ASPART
     Indication: TYPE 2 DIABETES MELLITUS
     Dosage: SLIDING SCALE, 10-12 UNITS, 3X/DAY
     Route: 058
     Dates: start: 20130702
  11. COLACE [Concomitant]
     Active Substance: DOCUSATE SODIUM
     Dates: start: 2000
  12. CARVEDILOL. [Concomitant]
     Active Substance: CARVEDILOL
     Dates: start: 1998
  13. RIBOFLAVIN [Concomitant]
     Active Substance: RIBOFLAVIN
     Dates: start: 2008
  14. LISINOPRIL. [Concomitant]
     Active Substance: LISINOPRIL
     Dates: start: 20130207
  15. VITAMIN B12 [Concomitant]
     Active Substance: CYANOCOBALAMIN
     Dates: start: 2008
  16. PRAVASTATIN. [Concomitant]
     Active Substance: PRAVASTATIN
     Dates: start: 1998
  17. ASPIRIN. [Concomitant]
     Active Substance: ASPIRIN
     Dates: start: 2000
  18. NEXIUM [Concomitant]
     Active Substance: ESOMEPRAZOLE MAGNESIUM
     Dates: start: 20130212
  19. MELATONIN [Concomitant]
     Active Substance: MELATONIN
     Dates: start: 2004
  20. CLARITIN [Concomitant]
     Active Substance: LORATADINE
     Dates: start: 1992

REACTIONS (1)
  - Hypoglycaemia [Recovered/Resolved]

NARRATIVE: CASE EVENT DATE: 20131225
